FAERS Safety Report 6860481-0 (Version None)
Quarter: 2010Q3

REPORT INFORMATION
  Report Type: 
  Country: None (occurrence: None)
  Receive Date: 20100720
  Receipt Date: 20100628
  Transmission Date: 20110219
  Serious: Yes (Hospitalization)
  Sender: FDA-Public Use
  Company Number: A0832695A

PATIENT
  Age: 59 Year
  Sex: Female
  Weight: 85.9 kg

DRUGS (8)
  1. AVANDIA [Suspect]
     Indication: DIABETES MELLITUS
     Dosage: 4MG PER DAY
     Route: 048
     Dates: start: 20000101
  2. ZOCOR [Concomitant]
  3. ADVAIR DISKUS 100/50 [Concomitant]
  4. INSULIN [Concomitant]
  5. PROTONIX [Concomitant]
  6. TEVETEN [Concomitant]
  7. PROCARDIA [Concomitant]
  8. BENICAR [Concomitant]

REACTIONS (5)
  - CARDIAC FAILURE CONGESTIVE [None]
  - CARDIAC VALVE DISEASE [None]
  - CORONARY ARTERY DISEASE [None]
  - MYOCARDIAL INFARCTION [None]
  - SICK SINUS SYNDROME [None]
